FAERS Safety Report 16366754 (Version 1)
Quarter: 2019Q2

REPORT INFORMATION
  Report Type: Spontaneous
  Country: US (occurrence: US)
  Receive Date: 20190529
  Receipt Date: 20190529
  Transmission Date: 20190711
  Serious: No
  Sender: FDA-Public Use
  Company Number: US-SA-2019SA139797

PATIENT
  Age: 59 Year
  Sex: Female

DRUGS (2)
  1. KEVZARA [Suspect]
     Active Substance: SARILUMAB
     Indication: RHEUMATOID ARTHRITIS
     Dosage: 1 DF, QOW
     Route: 058
     Dates: start: 20181205, end: 201905
  2. KEVZARA [Suspect]
     Active Substance: SARILUMAB
     Indication: MYOPATHY

REACTIONS (1)
  - Product use in unapproved indication [Unknown]
